FAERS Safety Report 9908448 (Version 1)
Quarter: 2014Q1

REPORT INFORMATION
  Report Type: Spontaneous
  Country: US (occurrence: None)
  Receive Date: 20140212
  Receipt Date: 20140212
  Transmission Date: 20141002
  Serious: Yes (Hospitalization)
  Sender: FDA-Public Use
  Company Number: None

PATIENT
  Age: 66 Year
  Sex: Male
  Weight: 75.4 kg

DRUGS (1)
  1. AMOXICILLIN/CLAVULNATE [Suspect]
     Indication: POSTOPERATIVE CARE
     Route: 048
     Dates: start: 20130523, end: 20130604

REACTIONS (3)
  - Diarrhoea [None]
  - Tachycardia [None]
  - Hypotension [None]
